FAERS Safety Report 4579163-3 (Version None)
Quarter: 2005Q1

REPORT INFORMATION
  Report Type: 
  Country: None (occurrence: None)
  Receive Date: 20050208
  Receipt Date: 20050208
  Transmission Date: 20050727
  Serious: Yes (Death)
  Sender: FDA-Public Use
  Company Number: None

PATIENT
  Sex: Female
  Weight: 83.8 kg

DRUGS (4)
  1. VALGANCICLOVIR [Suspect]
     Indication: CYTOMEGALOVIRUS INFECTION
     Dosage: 450 MG QD
     Dates: start: 20041210, end: 20041230
  2. VALGANCICLOVIR [Suspect]
     Indication: PROPHYLAXIS
     Dosage: 450 MG QD
     Dates: start: 20041210, end: 20041230
  3. PLACEBO [Suspect]
     Indication: CYTOMEGALOVIRUS INFECTION
     Dosage: 450 MG QD
     Dates: start: 20041210, end: 20041230
  4. PLACEBO [Suspect]
     Indication: PROPHYLAXIS
     Dosage: 450 MG QD
     Dates: start: 20041210, end: 20041230

REACTIONS (1)
  - DISEASE RECURRENCE [None]
